FAERS Safety Report 20994310 (Version 1)
Quarter: 2022Q2

REPORT INFORMATION
  Report Type: Spontaneous
  Country: FR (occurrence: FR)
  Receive Date: 20220622
  Receipt Date: 20220622
  Transmission Date: 20220720
  Serious: Yes (Hospitalization, Other)
  Sender: FDA-Public Use
  Company Number: None

PATIENT
  Age: 64 Year
  Sex: Female

DRUGS (5)
  1. PACLITAXEL [Suspect]
     Active Substance: PACLITAXEL
     Indication: Breast cancer metastatic
     Dosage: NR/UNKNOWN
     Route: 042
     Dates: start: 20220124
  2. CLOXACILLIN [Suspect]
     Active Substance: CLOXACILLIN
     Indication: Endocarditis staphylococcal
     Dosage: 2GX6 PER DAY
     Route: 042
     Dates: start: 20220201, end: 20220222
  3. HERCEPTIN [Suspect]
     Active Substance: TRASTUZUMAB
     Indication: Breast cancer metastatic
     Dosage: NR/UNKNOWN
     Route: 042
     Dates: start: 20220124
  4. PERJETA [Suspect]
     Active Substance: PERTUZUMAB
     Indication: Breast cancer metastatic
     Dosage: NR/UNKNOWN
     Route: 042
     Dates: start: 20220124
  5. LEVOFLOXACIN [Suspect]
     Active Substance: LEVOFLOXACIN
     Indication: Endocarditis staphylococcal
     Dosage: 750MG IN THE EVENING
     Route: 048
     Dates: start: 20220216, end: 20220220

REACTIONS (2)
  - Vascular purpura [Recovered/Resolved]
  - Agranulocytosis [Recovered/Resolved]

NARRATIVE: CASE EVENT DATE: 20220221
